FAERS Safety Report 7353640-4 (Version None)
Quarter: 2011Q1

REPORT INFORMATION
  Report Type: 
  Country: None (occurrence: None)
  Receive Date: 20110303
  Receipt Date: 20100608
  Transmission Date: 20110831
  Serious: Yes (Life-Threatening, Hospitalization)
  Sender: FDA-Public Use
  Company Number: US-004564

PATIENT
  Age: 50 Year
  Sex: Male

DRUGS (3)
  1. ISOVUE-300 [Suspect]
     Indication: CAROTID ARTERY STENOSIS
     Dosage: 100ML ONCE INTRAVENOUS (NOT OTHERWISE SPECIFIED)
     Route: 042
     Dates: start: 20100602, end: 20100602
  2. ISOVUE-300 [Suspect]
     Indication: ANGIOGRAM
     Dosage: 100ML ONCE INTRAVENOUS (NOT OTHERWISE SPECIFIED)
     Route: 042
     Dates: start: 20100602, end: 20100602
  3. ISOVUE-300 [Suspect]
     Indication: CEREBROVASCULAR ACCIDENT
     Dosage: 100ML ONCE INTRAVENOUS (NOT OTHERWISE SPECIFIED)
     Route: 042
     Dates: start: 20100602, end: 20100602

REACTIONS (3)
  - HYPERSENSITIVITY [None]
  - PRESYNCOPE [None]
  - ANAPHYLACTIC SHOCK [None]
